FAERS Safety Report 24687437 (Version 1)
Quarter: 2024Q4

REPORT INFORMATION
  Report Type: Spontaneous
  Country: AU (occurrence: AU)
  Receive Date: 20241202
  Receipt Date: 20241202
  Transmission Date: 20250114
  Serious: Yes (Other)
  Sender: GE HEALTHCARE
  Company Number: AU-GE HEALTHCARE-2024CSU013768

PATIENT
  Age: 66 Year
  Sex: Female

DRUGS (1)
  1. OMNIPAQUE [Suspect]
     Active Substance: IOHEXOL
     Indication: Computerised tomogram
     Dosage: 60 ML, TOTAL
     Route: 042
     Dates: start: 20241031, end: 20241031

REACTIONS (6)
  - Oropharyngeal discomfort [Unknown]
  - Throat clearing [Unknown]
  - Throat tightness [Unknown]
  - Dyspnoea [Unknown]
  - Contrast media reaction [Unknown]
  - Cough [Unknown]

NARRATIVE: CASE EVENT DATE: 20241031
